FAERS Safety Report 10308228 (Version 1)
Quarter: 2014Q3

REPORT INFORMATION
  Report Type: Spontaneous
  Country: US (occurrence: None)
  Receive Date: 20140715
  Receipt Date: 20140715
  Transmission Date: 20150326
  Serious: Yes (Hospitalization, Other)
  Sender: FDA-Public Use
  Company Number: None

PATIENT
  Sex: Female
  Weight: 61.24 kg

DRUGS (1)
  1. LASIX [Suspect]
     Active Substance: FUROSEMIDE
     Indication: RENAL TRANSPLANT
     Route: 048
     Dates: start: 2003

REACTIONS (2)
  - Product substitution issue [None]
  - Unevaluable event [None]

NARRATIVE: CASE EVENT DATE: 2003
